FAERS Safety Report 26052218 (Version 2)
Quarter: 2025Q4

REPORT INFORMATION
  Report Type: Spontaneous
  Country: JP (occurrence: JP)
  Receive Date: 20251117
  Receipt Date: 20251208
  Transmission Date: 20260118
  Serious: Yes (Other)
  Sender: JOHNSON AND JOHNSON
  Company Number: JP-JNJFOC-20251160408

PATIENT
  Age: 5 Decade
  Sex: Male

DRUGS (2)
  1. LAZCLUZE [Suspect]
     Active Substance: LAZERTINIB
     Indication: EGFR gene mutation
     Route: 048
  2. RYBREVANT [Suspect]
     Active Substance: AMIVANTAMAB-VMJW
     Indication: EGFR gene mutation
     Route: 041

REACTIONS (1)
  - Skin disorder [Unknown]
